FAERS Safety Report 17735399 (Version 1)
Quarter: 2020Q2

REPORT INFORMATION
  Report Type: Report from Study
  Country: IN (occurrence: IN)
  Receive Date: 20200501
  Receipt Date: 20200501
  Transmission Date: 20200714
  Serious: Yes (Other)
  Sender: FDA-Public Use
  Company Number: NVSC2020IN117057

PATIENT
  Age: 66 Year
  Sex: Female
  Weight: 95 kg

DRUGS (2)
  1. GALVUS MET [Suspect]
     Active Substance: METFORMIN HYDROCHLORIDE\VILDAGLIPTIN
     Indication: DIABETES MELLITUS
     Dosage: UNK, BID, 50/500, 1-0-1, 4 YEARS BACK
     Route: 048
  2. THYRONORM [Concomitant]
     Active Substance: LEVOTHYROXINE
     Indication: THYROID DISORDER
     Dosage: UNK, QD, 1-0-0
     Route: 048
     Dates: start: 20191230

REACTIONS (2)
  - Glycosylated haemoglobin increased [Unknown]
  - Body mass index increased [Unknown]

NARRATIVE: CASE EVENT DATE: 20190927
